FAERS Safety Report 10280696 (Version 1)
Quarter: 2014Q3

REPORT INFORMATION
  Report Type: Spontaneous
  Country: CA (occurrence: None)
  Receive Date: 20140702
  Receipt Date: 20140702
  Transmission Date: 20150326
  Serious: Yes (Other)
  Sender: FDA-Public Use
  Company Number: 2014000200

PATIENT
  Sex: Female

DRUGS (4)
  1. ACEON [Suspect]
     Active Substance: PERINDOPRIL ERBUMINE
     Indication: HYPERTENSION
     Dosage: 2 DF
     Route: 048
     Dates: start: 201302, end: 20140213
  2. ASPIRIN. [Concomitant]
     Active Substance: ASPIRIN
  3. INSULIN (INSULIN) [Concomitant]
     Active Substance: INSULIN NOS
  4. COVERSYL (PERINDOPRIL ERBUMINE) [Suspect]
     Active Substance: PERINDOPRIL
     Indication: HYPERTENSION
     Route: 048
     Dates: start: 20140214, end: 20140303

REACTIONS (7)
  - Activities of daily living impaired [None]
  - Sleep disorder [None]
  - Fatigue [None]
  - Nocturia [None]
  - Constipation [None]
  - Condition aggravated [None]
  - Pollakiuria [None]

NARRATIVE: CASE EVENT DATE: 2013
